FAERS Safety Report 11884336 (Version 3)
Quarter: 2016Q1

REPORT INFORMATION
  Report Type: Report from Study
  Country: US (occurrence: US)
  Receive Date: 20160103
  Receipt Date: 20160304
  Transmission Date: 20160526
  Serious: No
  Sender: FDA-Public Use
  Company Number: US-AMGEN-USASL2015136823

PATIENT
  Age: 62 Year
  Sex: Female

DRUGS (1)
  1. ENBREL [Suspect]
     Active Substance: ETANERCEPT
     Indication: RHEUMATOID ARTHRITIS
     Dosage: 50 MG, QWK
     Route: 065
     Dates: start: 20151207

REACTIONS (12)
  - Nausea [Unknown]
  - Injection site induration [Unknown]
  - Injection site pain [Unknown]
  - Fibromyalgia [Unknown]
  - Injection site swelling [Unknown]
  - Injection site erythema [Unknown]
  - Headache [Unknown]
  - Sinus headache [Unknown]
  - Musculoskeletal disorder [Unknown]
  - Adverse event [Unknown]
  - Fatigue [Unknown]
  - Migraine [Unknown]

NARRATIVE: CASE EVENT DATE: 2015
